FAERS Safety Report 25836626 (Version 1)
Quarter: 2025Q3

REPORT INFORMATION
  Report Type: Spontaneous
  Country: EU (occurrence: EU)
  Receive Date: 20250923
  Receipt Date: 20250923
  Transmission Date: 20251021
  Serious: Yes (Life-Threatening, Hospitalization)
  Sender: TEVA
  Company Number: None

PATIENT
  Age: 69 Year
  Sex: Male
  Weight: 64.8 kg

DRUGS (1)
  1. PANTOPRAZOLE [Suspect]
     Active Substance: PANTOPRAZOLE
     Indication: Prophylaxis
     Dosage: 1 PIECE TWICE A DAY, TABLET MSR, BRAND NAME NOT SPECIFIED
     Route: 048
     Dates: start: 20160913, end: 20250902

REACTIONS (1)
  - Hypomagnesaemia [Recovered/Resolved]
